FAERS Safety Report 7073586-9 (Version None)
Quarter: 2010Q4

REPORT INFORMATION
  Report Type: 
  Country: None (occurrence: None)
  Receive Date: 20101029
  Receipt Date: 20100713
  Transmission Date: 20110411
  Serious: No
  Sender: FDA-Public Use
  Company Number: A0870205A

PATIENT
  Sex: Female

DRUGS (2)
  1. ADVAIR DISKUS 100/50 [Suspect]
  2. BLOOD PRESSURE MEDICATION [Concomitant]

REACTIONS (2)
  - DRY EYE [None]
  - EYE PRURITUS [None]
